FAERS Safety Report 14107434 (Version 1)
Quarter: 2017Q4

REPORT INFORMATION
  Report Type: Other
  Country: FR (occurrence: FR)
  Receive Date: 20171019
  Receipt Date: 20171019
  Transmission Date: 20180321
  Serious: Yes (Other)
  Sender: FDA-Public Use
  Company Number: FR-TAKEDA-2017MPI009246

PATIENT
  Age: 58 Year
  Sex: Female

DRUGS (7)
  1. ERYTHROSINE [Suspect]
     Active Substance: FD+C RED NO. 3
     Indication: COUGH
     Dosage: UNK
     Route: 048
     Dates: start: 20170829, end: 20170919
  2. ERYTHROSINE [Suspect]
     Active Substance: FD+C RED NO. 3
     Dosage: 100 MG, QD
     Route: 048
     Dates: start: 20170926, end: 20170926
  3. VELCADE [Suspect]
     Active Substance: BORTEZOMIB
     Dosage: 2.4 MG, QD
     Route: 058
     Dates: start: 20170926, end: 20170926
  4. NEO-DEX [Concomitant]
     Active Substance: DEXTROMETHORPHAN HYDROBROMIDE
     Dosage: UNK
     Route: 065
     Dates: start: 20170829, end: 20170919
  5. VELCADE [Suspect]
     Active Substance: BORTEZOMIB
     Indication: PLASMA CELL MYELOMA
     Dosage: UNK
     Route: 058
     Dates: start: 20170829, end: 20170919
  6. NEO-DEX [Concomitant]
     Active Substance: DEXTROMETHORPHAN HYDROBROMIDE
     Dosage: UNK
     Route: 065
     Dates: start: 20170926
  7. REVLIMID [Concomitant]
     Active Substance: LENALIDOMIDE
     Dosage: UNK
     Route: 065
     Dates: start: 20170829, end: 20170919

REACTIONS (2)
  - Rash [Recovered/Resolved]
  - Angioedema [Recovered/Resolved]

NARRATIVE: CASE EVENT DATE: 20171007
